FAERS Safety Report 7200005-1 (Version None)
Quarter: 2010Q4

REPORT INFORMATION
  Report Type: 
  Country: None (occurrence: None)
  Receive Date: 20101228
  Receipt Date: 20101217
  Transmission Date: 20110411
  Serious: Yes (Hospitalization)
  Sender: FDA-Public Use
  Company Number: FR-BAXTER-2010BH030572

PATIENT
  Age: 67 Year
  Sex: Female

DRUGS (6)
  1. HOLOXAN BAXTER [Suspect]
     Indication: PRODUCT USED FOR UNKNOWN INDICATION
     Route: 042
     Dates: start: 20100712, end: 20100713
  2. HOLOXAN BAXTER [Suspect]
     Route: 065
     Dates: start: 20100101, end: 20100101
  3. DOXORUBICIN HCL [Suspect]
     Indication: PRODUCT USED FOR UNKNOWN INDICATION
     Route: 042
     Dates: start: 20100712, end: 20100713
  4. DOXORUBICIN HCL [Suspect]
     Route: 065
     Dates: start: 20100101, end: 20100101
  5. CISPLATIN [Suspect]
     Indication: PRODUCT USED FOR UNKNOWN INDICATION
     Route: 042
     Dates: start: 20100603, end: 20100603
  6. CISPLATIN [Suspect]
     Route: 065
     Dates: start: 20100101, end: 20100101

REACTIONS (3)
  - BONE MARROW FAILURE [None]
  - CARDIAC FAILURE [None]
  - RENAL FAILURE [None]
